FAERS Safety Report 7567879 (Version 3)
Quarter: 2016Q3

REPORT INFORMATION
  Report Type: Spontaneous
  Country: US (occurrence: US)
  Receive Date: 20100831
  Receipt Date: 20160705
  Transmission Date: 20161109
  Serious: Yes (Hospitalization, Other)
  Sender: FDA-Public Use
  Company Number: US-BAYER-201031548NA

PATIENT
  Age: 21 Year
  Sex: Female

DRUGS (1)
  1. MIRENA [Suspect]
     Active Substance: LEVONORGESTREL
     Indication: CONTRACEPTION
     Dosage: 20 MCG/24HR, CONT
     Route: 015
     Dates: start: 20070613, end: 20080821

REACTIONS (8)
  - Ovarian cyst [Recovered/Resolved]
  - Uterine perforation [Recovered/Resolved]
  - Injury [Recovered/Resolved]
  - Procedural pain [Not Recovered/Not Resolved]
  - Medical device pain [Recovered/Resolved]
  - Post procedural discomfort [Not Recovered/Not Resolved]
  - Procedural pain [Recovered/Resolved]
  - Endometriosis [None]

NARRATIVE: CASE EVENT DATE: 2007
